FAERS Safety Report 7391083-8 (Version None)
Quarter: 2011Q1

REPORT INFORMATION
  Report Type: 
  Country: None (occurrence: None)
  Receive Date: 20110324
  Receipt Date: 20110310
  Transmission Date: 20110831
  Serious: Yes (Hospitalization)
  Sender: FDA-Public Use
  Company Number: 2011-0522

PATIENT
  Age: 18 Year
  Sex: Male
  Weight: 35.38 kg

DRUGS (5)
  1. HUMIRA [Concomitant]
  2. ENDOCORTE INHALER (BUDESONIDE) [Concomitant]
  3. MERCAPTOPURINE [Concomitant]
  4. INCRELEX [Suspect]
     Indication: INSULIN-LIKE GROWTH FACTOR DECREASED
     Dosage: ADJUSTED UP TO 120MCG/KG OVER TIME (2 IN 1 D)
     Dates: start: 20071019, end: 20081110
  5. FLAGYL [Concomitant]

REACTIONS (2)
  - DRUG INEFFECTIVE [None]
  - T-CELL LYMPHOMA STAGE II [None]
